FAERS Safety Report 9106016 (Version 2)
Quarter: 2013Q2

REPORT INFORMATION
  Report Type: Spontaneous
  Country: US (occurrence: US)
  Receive Date: 20130221
  Receipt Date: 20130422
  Transmission Date: 20140414
  Serious: Yes (Death, Disabling)
  Sender: FDA-Public Use
  Company Number: US-CELGENEUS-163-21880-13011466

PATIENT
  Age: 74 Year
  Sex: Male

DRUGS (3)
  1. REVLIMID [Suspect]
     Indication: MYELODYSPLASTIC SYNDROME
     Dosage: 3.75 MILLIGRAM
     Route: 048
     Dates: start: 20121210, end: 20121214
  2. VIDAZA [Suspect]
     Indication: MYELODYSPLASTIC SYNDROME
     Route: 041
     Dates: start: 20121210, end: 20121214
  3. VIDAZA [Suspect]
     Route: 041
     Dates: start: 20120815, end: 20121116

REACTIONS (3)
  - Sepsis [Fatal]
  - Pneumonia [Fatal]
  - Fatigue [Recovering/Resolving]
